FAERS Safety Report 9959928 (Version 1)
Quarter: 2014Q1

REPORT INFORMATION
  Report Type: Report from Study
  Country: US (occurrence: US)
  Receive Date: 20140305
  Receipt Date: 20140305
  Transmission Date: 20141002
  Serious: No
  Sender: FDA-Public Use
  Company Number: US-ABBVIE-13P-163-1106520-00

PATIENT
  Age: 75 Year
  Sex: Female

DRUGS (9)
  1. HUMIRA [Suspect]
     Indication: CROHN^S DISEASE
     Dates: start: 20130520, end: 20130520
  2. HUMIRA [Suspect]
     Dates: start: 20130603, end: 20130603
  3. HUMIRA [Suspect]
     Dates: start: 20130617
  4. OXYCODONE [Suspect]
     Indication: PAIN
     Dosage: 5/325 MG 1-2 TAB Q 6 HOURS
  5. LIALDA [Concomitant]
     Indication: CROHN^S DISEASE
  6. LIPITOR [Concomitant]
     Indication: BLOOD CHOLESTEROL
     Dosage: 10 MG DAILY
  7. LOSARTAN [Concomitant]
     Indication: HYPERTENSION
     Dosage: 50 MG DAILY
  8. PROTONIX [Concomitant]
     Indication: DYSPEPSIA
     Dosage: DAILY
  9. U-FLEXA [Concomitant]
     Indication: PROPHYLAXIS

REACTIONS (4)
  - Bowel movement irregularity [Not Recovered/Not Resolved]
  - Back pain [Not Recovered/Not Resolved]
  - Back injury [Not Recovered/Not Resolved]
  - Diarrhoea [Not Recovered/Not Resolved]
